FAERS Safety Report 12986761 (Version 1)
Quarter: 2016Q4

REPORT INFORMATION
  Report Type: Spontaneous
  Country: US (occurrence: US)
  Receive Date: 20161130
  Receipt Date: 20161130
  Transmission Date: 20170207
  Serious: Yes (Other)
  Sender: FDA-Public Use
  Company Number: US-CLINIGEN GROUP PLC/ CLINIGEN HEALTHCARE LTD-E2B_00002714

PATIENT
  Age: 59 Year
  Sex: Female

DRUGS (2)
  1. RADIATION THERAPY [Concomitant]
     Active Substance: RADIATION THERAPY
     Route: 065
     Dates: start: 20000329
  2. ETHYOL [Suspect]
     Active Substance: AMIFOSTINE
     Indication: ADVERSE DRUG REACTION
     Dosage: 200 MG/M2 27 DAY(S)
     Route: 042
     Dates: start: 20000329, end: 20000424

REACTIONS (6)
  - Dizziness [Unknown]
  - Nausea [Unknown]
  - Haematemesis [Unknown]
  - Rash follicular [Unknown]
  - Flushing [Unknown]
  - Vomiting [Unknown]

NARRATIVE: CASE EVENT DATE: 20000419
